FAERS Safety Report 5371605-9 (Version None)
Quarter: 2007Q2

REPORT INFORMATION
  Report Type: 
  Country: None (occurrence: None)
  Receive Date: 20070615
  Receipt Date: 20060530
  Transmission Date: 20071010
  Serious: Yes (Other)
  Sender: FDA-Public Use
  Company Number: 200612568US

PATIENT
  Age: 68 Year
  Sex: Female

DRUGS (7)
  1. LANTUS [Suspect]
     Dates: start: 20050601
  2. FOSAMAX [Concomitant]
  3. CALCIUM CHLORIDE [Concomitant]
  4. NIFEDIPINE [Concomitant]
  5. CRESTOR [Concomitant]
  6. SALBUTAMOL [Concomitant]
  7. SINGULAIR [Concomitant]

REACTIONS (3)
  - FALL [None]
  - HYPOGLYCAEMIC COMA [None]
  - INJECTION SITE BRUISING [None]
